FAERS Safety Report 8620909-2 (Version None)
Quarter: 2012Q3

REPORT INFORMATION
  Report Type: 
  Country: None (occurrence: None)
  Receive Date: 20120824
  Receipt Date: 20120816
  Transmission Date: 20120928
  Serious: Yes (Congenital Anomaly)
  Sender: FDA-Public Use
  Company Number: US-TEVA-355443USA

PATIENT
  Sex: Male
  Weight: 4.452 kg

DRUGS (11)
  1. OMEPRAZOLE [Concomitant]
     Indication: GASTROOESOPHAGEAL REFLUX DISEASE
  2. MULTI-VITAMINS [Concomitant]
     Indication: PREGNANCY
  3. CALAMINE [Concomitant]
  4. PROVIGIL [Suspect]
     Route: 064
  5. INSULIN ASPART [Concomitant]
     Indication: DIABETES MELLITUS
  6. AMMONIUM LACTATE [Concomitant]
  7. LACTOBACILLUS ACIDOPHILUS [Concomitant]
     Indication: PROBIOTIC THERAPY
  8. ASCORBIC ACID [Concomitant]
     Indication: SUPPLEMENTATION THERAPY
  9. LANTUS [Concomitant]
     Indication: DIABETES MELLITUS
  10. ONDANSETRON [Concomitant]
     Indication: DEPRESSION
  11. SERTRALINE HYDROCHLORIDE [Concomitant]
     Indication: DEPRESSION

REACTIONS (1)
  - MACROSOMIA [None]
